FAERS Safety Report 6013428-3 (Version None)
Quarter: 2008Q4

REPORT INFORMATION
  Report Type: 
  Country: None (occurrence: None)
  Receive Date: 20081216
  Receipt Date: 20080121
  Transmission Date: 20090506
  Serious: Yes (Other)
  Sender: FDA-Public Use
  Company Number: US-WYE-H02265208

PATIENT
  Sex: Female

DRUGS (7)
  1. EFFEXOR XR [Suspect]
     Dosage: SEE IMAGE
     Dates: start: 20040101, end: 20050101
  2. EFFEXOR XR [Suspect]
     Dosage: SEE IMAGE
     Dates: start: 20050101, end: 20050101
  3. EFFEXOR XR [Suspect]
     Dosage: SEE IMAGE
     Dates: start: 20050101, end: 20050101
  4. EFFEXOR XR [Suspect]
     Dosage: SEE IMAGE
     Dates: start: 20050101, end: 20050101
  5. EFFEXOR XR [Suspect]
     Dosage: SEE IMAGE
     Dates: start: 20050101, end: 20070101
  6. EFFEXOR XR [Suspect]
     Dosage: SEE IMAGE
     Dates: start: 20050101
  7. EFFEXOR XR [Suspect]
     Dosage: SEE IMAGE
     Dates: start: 20070101

REACTIONS (5)
  - DEPRESSION [None]
  - DRUG WITHDRAWAL SYNDROME [None]
  - INSOMNIA [None]
  - IRRITABILITY [None]
  - TEARFULNESS [None]
